FAERS Safety Report 5330044-7 (Version None)
Quarter: 2007Q2

REPORT INFORMATION
  Report Type: 
  Country: None (occurrence: None)
  Receive Date: 20070521
  Receipt Date: 20070515
  Transmission Date: 20071010
  Serious: Yes (Other)
  Sender: FDA-Public Use
  Company Number: CA-ELI_LILLY_AND_COMPANY-CA200705004126

PATIENT
  Age: 38 Year
  Sex: Male
  Weight: 147.39 kg

DRUGS (5)
  1. ZYPREXA [Suspect]
     Indication: BIPOLAR DISORDER
     Dosage: 5 MG, UNK
     Dates: start: 20020101
  2. ZYPREXA [Suspect]
     Dosage: 7 MG, UNK
  3. ZYPREXA [Suspect]
     Dosage: 12 MG, UNK
  4. ZYPREXA [Suspect]
     Dosage: 5 MG, DAILY (1/D)
     Route: 048
  5. VALIUM [Concomitant]

REACTIONS (3)
  - HYPERSOMNIA [None]
  - WAIST CIRCUMFERENCE INCREASED [None]
  - WEIGHT INCREASED [None]
